FAERS Safety Report 13855315 (Version 1)
Quarter: 2017Q3

REPORT INFORMATION
  Report Type: Spontaneous
  Country: US (occurrence: US)
  Receive Date: 20170810
  Receipt Date: 20170810
  Transmission Date: 20171127
  Serious: No
  Sender: FDA-Public Use
  Company Number: US-VIFOR (INTERNATIONAL) INC.-VIT-2017-04697

PATIENT
  Age: 53 Year
  Sex: Male

DRUGS (21)
  1. CICLOSPORIN [Concomitant]
     Active Substance: CYCLOSPORINE
  2. GLIPIZIDE. [Concomitant]
     Active Substance: GLIPIZIDE
  3. NOVOLOG [Concomitant]
     Active Substance: INSULIN ASPART
  4. OMEPRAZOLE. [Concomitant]
     Active Substance: OMEPRAZOLE
  5. ULORIC [Concomitant]
     Active Substance: FEBUXOSTAT
  6. DILTIAZEM. [Concomitant]
     Active Substance: DILTIAZEM
  7. ATORVASTATIN [Concomitant]
     Active Substance: ATORVASTATIN
  8. ATENOLOL. [Concomitant]
     Active Substance: ATENOLOL
  9. CLONIDINE. [Concomitant]
     Active Substance: CLONIDINE
  10. LOSARTAN. [Concomitant]
     Active Substance: LOSARTAN
  11. VELTASSA [Suspect]
     Active Substance: PATIROMER
     Indication: HYPERKALAEMIA
     Route: 048
     Dates: start: 20161014
  12. GLUCAGON. [Concomitant]
     Active Substance: GLUCAGON
  13. PREDNISONE. [Concomitant]
     Active Substance: PREDNISONE
  14. PIOGLITAZONE. [Concomitant]
     Active Substance: PIOGLITAZONE
  15. AMOXICILLIN. [Concomitant]
     Active Substance: AMOXICILLIN
  16. VICTOZA [Concomitant]
     Active Substance: LIRAGLUTIDE
  17. FUROSEMIDE. [Concomitant]
     Active Substance: FUROSEMIDE
  18. NEPHRO VITE [Concomitant]
  19. HYDRALAZINE [Concomitant]
     Active Substance: HYDRALAZINE HYDROCHLORIDE
  20. LANTUS [Concomitant]
     Active Substance: INSULIN GLARGINE
  21. MYCOPHENOLATE MOFETIL. [Concomitant]
     Active Substance: MYCOPHENOLATE MOFETIL

REACTIONS (4)
  - Drug dose omission [Recovered/Resolved]
  - Pyrexia [Recovered/Resolved]
  - Gastroenteritis viral [Recovered/Resolved]
  - Diarrhoea [Recovered/Resolved]

NARRATIVE: CASE EVENT DATE: 20170417
